FAERS Safety Report 8086833-1 (Version None)
Quarter: 2012Q1

REPORT INFORMATION
  Report Type: 
  Country: None (occurrence: None)
  Receive Date: 20120128
  Receipt Date: 20110519
  Transmission Date: 20120608
  Serious: No
  Sender: FDA-Public Use
  Company Number: US-ABBOTT-11P-163-0727055-00

PATIENT

DRUGS (4)
  1. BUSPAR [Concomitant]
     Indication: ANXIETY
  2. METOPROLOL TARTRATE [Concomitant]
     Indication: HYPERTENSION
  3. HUMIRA [Suspect]
     Indication: PSORIATIC ARTHROPATHY
     Route: 058
     Dates: start: 20100101
  4. PROZAC [Concomitant]
     Indication: DEPRESSION

REACTIONS (3)
  - HERPES ZOSTER [None]
  - DIZZINESS [None]
  - NAUSEA [None]
